FAERS Safety Report 4782413-1 (Version None)
Quarter: 2005Q3

REPORT INFORMATION
  Report Type: 
  Country: None (occurrence: None)
  Receive Date: 20050929
  Receipt Date: 20040802
  Transmission Date: 20060218
  Serious: No
  Sender: FDA-Public Use
  Company Number: 380031

PATIENT
  Age: 40 Year
  Sex: Female
  Weight: 59.1 kg

DRUGS (8)
  1. COREG [Suspect]
     Indication: DRUG USE FOR UNKNOWN INDICATION
     Dosage: 6.25MG UNKNOWN
     Route: 048
  2. EFFEXOR [Concomitant]
  3. TRAZODONE [Concomitant]
  4. WELLBUTRIN [Concomitant]
     Route: 048
  5. ESTRADIOL [Concomitant]
  6. ESTRATEST [Concomitant]
  7. CLONOPIN [Concomitant]
  8. ELMIRON [Concomitant]

REACTIONS (2)
  - FLUID RETENTION [None]
  - WEIGHT INCREASED [None]
